FAERS Safety Report 22124483 (Version 1)
Quarter: 2023Q1

REPORT INFORMATION
  Report Type: Spontaneous
  Country: TR (occurrence: TR)
  Receive Date: 20230322
  Receipt Date: 20230322
  Transmission Date: 20230418
  Serious: Yes (Other)
  Sender: FDA-Public Use
  Company Number: TR-AMGEN-TURSP2023047878

PATIENT

DRUGS (2)
  1. ADALIMUMAB [Suspect]
     Active Substance: ADALIMUMAB
     Indication: Psoriasis
     Dosage: UNK
     Route: 065
  2. ISONIAZID [Concomitant]
     Active Substance: ISONIAZID
     Indication: Prophylaxis
     Dosage: UNK
     Route: 065

REACTIONS (13)
  - Haemorrhage [Unknown]
  - Lupus-like syndrome [Unknown]
  - Pancytopenia [Unknown]
  - Palmoplantar pustulosis [Unknown]
  - Adverse reaction [Unknown]
  - Drug therapeutic incompatibility [Unknown]
  - Drug ineffective [Unknown]
  - Therapy partial responder [Unknown]
  - Urticaria [Unknown]
  - Proteinuria [Unknown]
  - Accident [Unknown]
  - Surgery [Unknown]
  - Hepatic enzyme increased [Unknown]
